FAERS Safety Report 9355619 (Version 2)
Quarter: 2013Q3

REPORT INFORMATION
  Report Type: Spontaneous
  Country: SE (occurrence: SE)
  Receive Date: 20130619
  Receipt Date: 20130912
  Transmission Date: 20140515
  Serious: Yes (Death, Other)
  Sender: FDA-Public Use
  Company Number: SE-ASTELLAS-2013EU002648

PATIENT
  Age: 11 Month
  Sex: Female

DRUGS (1)
  1. PROGRAF [Suspect]
     Indication: LIVER TRANSPLANT
     Dosage: UNK
     Route: 065

REACTIONS (5)
  - Multi-organ failure [Fatal]
  - Hepatic failure [Fatal]
  - Small intestinal perforation [Unknown]
  - Large intestine perforation [Unknown]
  - Immunosuppressant drug level increased [Unknown]
